FAERS Safety Report 25798155 (Version 1)
Quarter: 2025Q3

REPORT INFORMATION
  Report Type: Spontaneous
  Country: EU (occurrence: EU)
  Receive Date: 20250912
  Receipt Date: 20250912
  Transmission Date: 20251020
  Serious: Yes (Other)
  Sender: PFIZER
  Company Number: None

PATIENT
  Sex: Male

DRUGS (1)
  1. IRINOTECAN HYDROCHLORIDE [Suspect]
     Active Substance: IRINOTECAN HYDROCHLORIDE
     Route: 042

REACTIONS (5)
  - Hypertension [Recovered/Resolved]
  - Papule [Recovered/Resolved]
  - Pruritus [Recovered/Resolved]
  - Skin reaction [Recovered/Resolved]
  - Vision blurred [Recovered/Resolved]

NARRATIVE: CASE EVENT DATE: 20250808
